FAERS Safety Report 17134640 (Version 2)
Quarter: 2021Q3

REPORT INFORMATION
  Report Type: Spontaneous
  Country: CA (occurrence: CA)
  Receive Date: 20191210
  Receipt Date: 20210806
  Transmission Date: 20211014
  Serious: Yes (Hospitalization)
  Sender: FDA-Public Use
  Company Number: CA-ROCHE-2491033

PATIENT
  Age: 11 Year
  Sex: Female

DRUGS (1)
  1. SOMATROPIN. [Suspect]
     Active Substance: SOMATROPIN
     Indication: TURNER^S SYNDROME
     Route: 058

REACTIONS (1)
  - Endocarditis [Recovered/Resolved]
